FAERS Safety Report 22197357 (Version 3)
Quarter: 2023Q2

REPORT INFORMATION
  Report Type: Report from Study
  Country: ES (occurrence: None)
  Receive Date: 20230411
  Receipt Date: 20230616
  Transmission Date: 20230721
  Serious: Yes (Hospitalization)
  Sender: FDA-Public Use
  Company Number: ES-Eisai Medical Research-EC-2023-132884

PATIENT
  Age: 53 Year
  Sex: Male
  Weight: 62.1 kg

DRUGS (16)
  1. LENVATINIB [Suspect]
     Active Substance: LENVATINIB
     Indication: Clear cell renal cell carcinoma
     Route: 048
     Dates: start: 20221111, end: 20230123
  2. QUAVONLIMAB [Suspect]
     Active Substance: QUAVONLIMAB
     Indication: Clear cell renal cell carcinoma
     Dosage: QUAVONLIMAB (MK-1308) 25 MG + PEMBROLIZUMAB (MK-3475) 400 MG (MK-1308A)
     Route: 042
     Dates: start: 20221111, end: 20221223
  3. ENALAPRIL [Concomitant]
     Active Substance: ENALAPRIL
     Dates: start: 20221117
  4. MOVICOL [Concomitant]
     Active Substance: POLYETHYLENE GLYCOL 3350\POTASSIUM CHLORIDE\SODIUM BICARBONATE\SODIUM CHLORIDE
     Dates: start: 20221125
  5. EMULIQUEN LAXANTE [PARAFFIN;SODIUM PICOSULFATE] [Concomitant]
     Dates: start: 20221125
  6. NALOXEGOL [Concomitant]
     Active Substance: NALOXEGOL
     Dates: start: 20221125
  7. ZOLEDRONIC ACID [Concomitant]
     Active Substance: ZOLEDRONIC ACID
     Dates: start: 20221125
  8. DEXAMETHASONE [Concomitant]
     Active Substance: DEXAMETHASONE
     Dates: start: 20221223
  9. MORPHINE [Concomitant]
     Active Substance: MORPHINE
     Dates: start: 20221229
  10. PREGABALIN [Concomitant]
     Active Substance: PREGABALIN
     Dates: start: 20230101
  11. OXYCODONE [Concomitant]
     Active Substance: OXYCODONE
     Dates: start: 20230101
  12. MIDAZOLAM [Concomitant]
     Active Substance: MIDAZOLAM
     Dates: start: 20230101
  13. DENOSUMAB [Concomitant]
     Active Substance: DENOSUMAB
     Dates: start: 20230101
  14. METOCLOPRAMIDE [Concomitant]
     Active Substance: METOCLOPRAMIDE
     Dates: start: 20230109
  15. PHOSPHORUS [Concomitant]
     Active Substance: PHOSPHORUS
     Dates: start: 20230109
  16. PEMBROLIZUMAB [Suspect]
     Active Substance: PEMBROLIZUMAB

REACTIONS (1)
  - Colitis [Recovered/Resolved]

NARRATIVE: CASE EVENT DATE: 20230124
